FAERS Safety Report 18799550 (Version 1)
Quarter: 2021Q1

REPORT INFORMATION
  Report Type: Spontaneous
  Country: CA (occurrence: CA)
  Receive Date: 20210128
  Receipt Date: 20210128
  Transmission Date: 20210419
  Serious: Yes (Hospitalization, Disabling, Other)
  Sender: FDA-Public Use
  Company Number: CA-JNJFOC-20210133839

PATIENT
  Sex: Male

DRUGS (8)
  1. PAROXETINE HYDROCHLORIDE. [Suspect]
     Active Substance: PAROXETINE HYDROCHLORIDE
     Indication: MAJOR DEPRESSION
     Route: 048
  2. PROPRANOLOL [Suspect]
     Active Substance: PROPRANOLOL HYDROCHLORIDE
     Indication: TACHYCARDIA
     Route: 048
  3. AA CLOZAPINE [Suspect]
     Active Substance: CLOZAPINE
     Indication: OPPOSITIONAL DEFIANT DISORDER
     Route: 048
  4. AA CLOZAPINE [Suspect]
     Active Substance: CLOZAPINE
     Route: 048
  5. PAROXETINE. [Concomitant]
     Active Substance: PAROXETINE
     Indication: ANXIETY
     Route: 048
  6. CONCERTA [Suspect]
     Active Substance: METHYLPHENIDATE HYDROCHLORIDE
     Indication: ATTENTION DEFICIT HYPERACTIVITY DISORDER
     Route: 048
  7. AA CLOZAPINE [Suspect]
     Active Substance: CLOZAPINE
     Route: 048
  8. LITHIUM. [Suspect]
     Active Substance: LITHIUM
     Indication: MAJOR DEPRESSION
     Route: 048

REACTIONS (9)
  - Respiratory disorder [Unknown]
  - Obesity [Unknown]
  - Off label use [Unknown]
  - Viral infection [Unknown]
  - Asthma [Unknown]
  - Respiratory distress [Unknown]
  - Contraindicated product administered [Unknown]
  - Intentional product use issue [Unknown]
  - Incorrect dose administered [Unknown]
